FAERS Safety Report 4667563-2 (Version None)
Quarter: 2005Q2

REPORT INFORMATION
  Report Type: 
  Country: None (occurrence: None)
  Receive Date: 20050520
  Receipt Date: 20041202
  Transmission Date: 20051028
  Serious: Yes (Other)
  Sender: FDA-Public Use
  Company Number: PHEH2004US12914

PATIENT
  Age: 44 Year
  Sex: Female
  Weight: 166 kg

DRUGS (10)
  1. ZOMETA [Suspect]
     Indication: METASTASES TO BONE
     Dosage: 4 MG, QMO
     Dates: start: 20030731, end: 20041101
  2. ZOMETA [Suspect]
     Dosage: 4 MG, QMO
     Dates: start: 20020401, end: 20020701
  3. DOXIL [Concomitant]
     Dosage: 75 MG, QMO
  4. KYTRIL [Concomitant]
  5. COUMADIN [Concomitant]
     Dosage: 1 MG, UNK
     Dates: start: 20040901
  6. EPOGEN [Concomitant]
  7. TAXOTERE [Concomitant]
     Dates: start: 20030327, end: 20040513
  8. LUPRON [Concomitant]
     Dates: start: 20020301, end: 20040318
  9. GEMZAR [Concomitant]
     Dosage: 330 MG, UNK
     Dates: start: 20040806, end: 20041001
  10. NAVELBINE [Concomitant]
     Dates: start: 20040618, end: 20040801

REACTIONS (4)
  - JAW DISORDER [None]
  - OSTEONECROSIS [None]
  - TOOTH EXTRACTION [None]
  - TOOTHACHE [None]
